FAERS Safety Report 25032666 (Version 1)
Quarter: 2025Q1

REPORT INFORMATION
  Report Type: Spontaneous
  Country: RS (occurrence: RS)
  Receive Date: 20250303
  Receipt Date: 20250303
  Transmission Date: 20250409
  Serious: Yes (Hospitalization)
  Sender: JUBILANT
  Company Number: RS-JUBILANT CADISTA PHARMACEUTICALS-2025JUB00019

PATIENT
  Age: 27 Year
  Sex: Male

DRUGS (1)
  1. METHYLPREDNISOLONE [Suspect]
     Active Substance: METHYLPREDNISOLONE
     Indication: Optic neuritis
     Dosage: 1000 MG, 1X/DAY
     Route: 042

REACTIONS (1)
  - Central serous chorioretinopathy [Not Recovered/Not Resolved]
